FAERS Safety Report 24993654 (Version 2)
Quarter: 2025Q1

REPORT INFORMATION
  Report Type: Spontaneous
  Country: US (occurrence: US)
  Receive Date: 20250221
  Receipt Date: 20250305
  Transmission Date: 20250408
  Serious: No
  Sender: SANDOZ
  Company Number: US-SANDOZ-SDZ2025US010961

PATIENT
  Sex: Female
  Weight: 77.1 kg

DRUGS (2)
  1. COMBIPATCH [Suspect]
     Active Substance: ESTRADIOL\NORETHINDRONE ACETATE
     Indication: Off label use
     Route: 062
     Dates: start: 2024
  2. COMBIPATCH [Suspect]
     Active Substance: ESTRADIOL\NORETHINDRONE ACETATE
     Route: 062
     Dates: start: 2024

REACTIONS (6)
  - Postmenopausal haemorrhage [Recovered/Resolved]
  - Progesterone decreased [Unknown]
  - Unevaluable event [Unknown]
  - Off label use [Not Recovered/Not Resolved]
  - Therapeutic product ineffective [Unknown]
  - Therapeutic product effect prolonged [Unknown]

NARRATIVE: CASE EVENT DATE: 20240101
